FAERS Safety Report 24046810 (Version 2)
Quarter: 2024Q3

REPORT INFORMATION
  Report Type: Spontaneous
  Country: US (occurrence: US)
  Receive Date: 20240703
  Receipt Date: 20240913
  Transmission Date: 20241017
  Serious: Yes (Death, Hospitalization, Other)
  Sender: MARINUS PHARMACEUTICALS
  Company Number: US-MARINUS PHARMACEUTICALS, INC.-MAR2024000135

PATIENT

DRUGS (33)
  1. ZTALMY [Suspect]
     Active Substance: GANAXOLONE
     Indication: Product used for unknown indication
     Dosage: 600 MILLIGRAM TID
     Route: 048
     Dates: start: 20230201, end: 20240614
  2. ZTALMY [Suspect]
     Active Substance: GANAXOLONE
     Dosage: 12 MILLILITER, TID
     Route: 048
     Dates: start: 20230201, end: 20240614
  3. BENZTROPINE MESYLATE [Concomitant]
     Active Substance: BENZTROPINE MESYLATE
     Indication: Extrapyramidal disorder
     Dosage: 2 MILLIGRAM, BID 1 TABLET PER PEG
     Route: 065
  4. CLONAZEPAM [Concomitant]
     Active Substance: CLONAZEPAM
     Indication: Impulse-control disorder
     Dosage: 1 MILLIGRAM, BID 1 TABLET PER PEG
     Route: 065
  5. EPIDIOLEX [Concomitant]
     Active Substance: CANNABIDIOL
     Indication: Epilepsy
     Dosage: 100MG/1ML, 10ML PER PEG
     Route: 065
  6. FAMOTIDINE [Concomitant]
     Active Substance: FAMOTIDINE
     Indication: Gastrooesophageal reflux disease
     Dosage: 20 MILLIGRAM, BID, 1 PER PEG
  7. LAMOTRIGINE [Concomitant]
     Active Substance: LAMOTRIGINE
     Indication: Epilepsy
     Dosage: 200 MILLIGRAM, BID, 1 TABLET PER PEG
     Route: 065
  8. LEVETIRACETAM [Concomitant]
     Active Substance: LEVETIRACETAM
     Indication: Epilepsy
     Dosage: 100MG/ML, BID, 5ML PER PEG
     Route: 065
  9. NAYZILAM [Concomitant]
     Active Substance: MIDAZOLAM
     Indication: Seizure
     Dosage: 5MG/0.1ML, 1 SPRAY TO ONE NARE
     Route: 065
  10. OLANZAPINE [Concomitant]
     Active Substance: OLANZAPINE
     Indication: Impulse-control disorder
     Dosage: 10 MILLIGRAM, 1 TABLET PER PEG Q NOON
     Route: 065
  11. OLANZAPINE [Concomitant]
     Active Substance: OLANZAPINE
     Dosage: 15 MILLIGRAM,  1 TABLET PER PEG QHS
     Route: 065
  12. OLANZAPINE [Concomitant]
     Active Substance: OLANZAPINE
     Dosage: 5 MILLIGRAM,  1 TABLET PER PEG QAM
     Route: 065
  13. FYCOMPA [Concomitant]
     Active Substance: PERAMPANEL
     Indication: Product used for unknown indication
     Dosage: 4 MILLIGRAM QHS
     Route: 065
     Dates: end: 202309
  14. FYCOMPA [Concomitant]
     Active Substance: PERAMPANEL
     Dosage: 2 MILLIGRAM  QHS
     Route: 065
     Dates: start: 202309, end: 202309
  15. FYCOMPA [Concomitant]
     Active Substance: PERAMPANEL
     Dosage: 4 MILLIGRAM QHS
     Route: 065
     Dates: start: 20231018, end: 20231024
  16. FYCOMPA [Concomitant]
     Active Substance: PERAMPANEL
     Dosage: 6 MILLIGRAM QHS
     Route: 065
     Dates: start: 20231025, end: 20231030
  17. FYCOMPA [Concomitant]
     Active Substance: PERAMPANEL
     Dosage: 8 MILLIGRAM QHS
     Route: 065
     Dates: start: 20231101, end: 20240306
  18. XCOPRI [Concomitant]
     Active Substance: CENOBAMATE
     Indication: Product used for unknown indication
     Dosage: UNK
     Route: 065
  19. XCOPRI [Concomitant]
     Active Substance: CENOBAMATE
     Dosage: 300 MILLIGRAM, SINGLE
     Route: 065
     Dates: start: 20230906
  20. XCOPRI [Concomitant]
     Active Substance: CENOBAMATE
     Dosage: 300 MILLIGRAM QHS
     Route: 065
  21. XCOPRI [Concomitant]
     Active Substance: CENOBAMATE
     Dosage: 300 MILLIGRAM HS
     Route: 065
  22. XCOPRI [Concomitant]
     Active Substance: CENOBAMATE
     Dosage: 350 MILLIGRAM PM
     Route: 065
     Dates: start: 20240214, end: 20240220
  23. XCOPRI [Concomitant]
     Active Substance: CENOBAMATE
     Dosage: 350 MILLIGRAM, QD
     Route: 065
     Dates: start: 20240221, end: 20240305
  24. XCOPRI [Concomitant]
     Active Substance: CENOBAMATE
     Dosage: 300 MILLIGRAM QPM
     Route: 065
     Dates: start: 20240306
  25. XCOPRI [Concomitant]
     Active Substance: CENOBAMATE
     Dosage: 200 MILLIGRAM HS
     Route: 065
     Dates: start: 20240320, end: 20240326
  26. XCOPRI [Concomitant]
     Active Substance: CENOBAMATE
     Dosage: 100 MILLIGRAM QHS
     Route: 065
     Dates: start: 20240327, end: 20240410
  27. XCOPRI [Concomitant]
     Active Substance: CENOBAMATE
     Dosage: 50 MILLIGRAM, QD
     Route: 065
     Dates: start: 20240411
  28. LAMICTAL XR [Concomitant]
     Active Substance: LAMOTRIGINE
     Indication: Product used for unknown indication
     Dosage: 400 MILLIGRAM QPM
     Route: 065
     Dates: start: 2023, end: 2023
  29. LAMICTAL XR [Concomitant]
     Active Substance: LAMOTRIGINE
     Dosage: 1200  MILLIGRAM QPM
     Route: 065
     Dates: start: 2023
  30. LAMICTAL XR [Concomitant]
     Active Substance: LAMOTRIGINE
     Dosage: 400  MILLIGRAM QPM
     Route: 065
  31. LAMICTAL XR [Concomitant]
     Active Substance: LAMOTRIGINE
     Dosage: 400  MILLIGRAM QHS
     Route: 065
  32. VIMPAT [Concomitant]
     Active Substance: LACOSAMIDE
     Indication: Product used for unknown indication
     Dosage: UNK
     Route: 065
  33. VIMPAT [Concomitant]
     Active Substance: LACOSAMIDE
     Dosage: 10 MILLIGRAM QHS
     Route: 065
     Dates: start: 20231220

REACTIONS (34)
  - Cardio-respiratory arrest [Fatal]
  - Sudden unexplained death in epilepsy [Fatal]
  - Seizure [Fatal]
  - Acute kidney injury [Fatal]
  - Sinus tachycardia [Unknown]
  - Head injury [Unknown]
  - Neck injury [Unknown]
  - Face injury [Unknown]
  - Skin laceration [Recovered/Resolved]
  - Back pain [Unknown]
  - Fall [Unknown]
  - Mental disorder [Recovering/Resolving]
  - Skin laceration [Recovered/Resolved]
  - Pulmonary contusion [Unknown]
  - Asthenia [Unknown]
  - Encephalopathy [Unknown]
  - Haematuria [Unknown]
  - Fall [Unknown]
  - Hyperkalaemia [Unknown]
  - Metabolic acidosis [Unknown]
  - Sepsis [Unknown]
  - Pneumonia [Recovered/Resolved]
  - Hypertension [Unknown]
  - Tachycardia [Unknown]
  - Haematuria [Unknown]
  - Urinary tract infection [Unknown]
  - Anaemia [Unknown]
  - Hypomagnesaemia [Unknown]
  - Heart rate increased [Unknown]
  - Hyperkeratosis [Unknown]
  - Onychomycosis [Unknown]
  - Somnolence [Unknown]
  - Decreased appetite [Unknown]
  - Weight decreased [Unknown]

NARRATIVE: CASE EVENT DATE: 20230101
